FAERS Safety Report 10465186 (Version 2)
Quarter: 2014Q4

REPORT INFORMATION
  Report Type: Spontaneous
  Country: US (occurrence: US)
  Receive Date: 20140919
  Receipt Date: 20141017
  Transmission Date: 20150528
  Serious: Yes (Hospitalization)
  Sender: FDA-Public Use
  Company Number: US-B.I. PHARMACEUTICALS,INC./RIDGEFIELD-2014-BI-43065BP

PATIENT
  Age: 67 Year
  Sex: Female
  Weight: 70.3 kg

DRUGS (9)
  1. ACCOLATE [Concomitant]
     Active Substance: ZAFIRLUKAST
     Indication: ASTHMA
     Dosage: DOSE PER APPLICATION: 20; DAILY DOSE: 40
     Route: 048
     Dates: start: 1990
  2. ASPIRIN. [Concomitant]
     Active Substance: ASPIRIN
     Indication: ANTICOAGULANT THERAPY
     Dosage: 81 MG
     Route: 048
     Dates: start: 201409
  3. METOPROLOL TARTRATE. [Concomitant]
     Active Substance: METOPROLOL TARTRATE
     Indication: HYPERTENSION
     Dosage: 200 MG
     Route: 048
     Dates: start: 2004
  4. GLIMEPIRIDE. [Concomitant]
     Active Substance: GLIMEPIRIDE
     Indication: DIABETES MELLITUS
     Dosage: 8 MG
     Route: 048
     Dates: start: 2004
  5. SPIRIVA [Suspect]
     Active Substance: TIOTROPIUM BROMIDE MONOHYDRATE
     Indication: ASTHMA
     Dosage: 18 MCG
     Route: 055
     Dates: start: 201310
  6. SYMBICORT [Concomitant]
     Active Substance: BUDESONIDE\FORMOTEROL FUMARATE DIHYDRATE
     Indication: ASTHMA
     Dosage: 2 PUF
     Route: 055
     Dates: start: 1900
  7. LOVASTATIN. [Concomitant]
     Active Substance: LOVASTATIN
     Indication: BLOOD CHOLESTEROL INCREASED
     Dosage: 20 MG
     Route: 048
     Dates: start: 2004
  8. LEVOTHYROXINE [Concomitant]
     Active Substance: LEVOTHYROXINE
     Indication: THYROIDECTOMY
     Dosage: 125 MCG
     Route: 048
     Dates: start: 2013
  9. CALCIUM [Concomitant]
     Active Substance: CALCIUM
     Indication: THYROIDECTOMY
     Dosage: 1200 MG
     Route: 048
     Dates: start: 2013

REACTIONS (4)
  - Polycythaemia [Unknown]
  - Product quality issue [Unknown]
  - Portal vein thrombosis [Unknown]
  - Off label use [Unknown]

NARRATIVE: CASE EVENT DATE: 201310
